FAERS Safety Report 8361535-2 (Version None)
Quarter: 2012Q2

REPORT INFORMATION
  Report Type: 
  Country: None (occurrence: None)
  Receive Date: 20120515
  Receipt Date: 20120222
  Transmission Date: 20120825
  Serious: Yes (Death, Hospitalization, Disabling, Other)
  Sender: FDA-Public Use
  Company Number: US-GLAXOSMITHKLINE-A0967007A

PATIENT
  Age: 63 Year
  Sex: Male
  Weight: 55.9 kg

DRUGS (8)
  1. MUCINEX [Concomitant]
  2. ARZERRA [Suspect]
     Indication: CHRONIC LYMPHOCYTIC LEUKAEMIA
     Dosage: 2000MG WEEKLY
     Route: 042
     Dates: start: 20111213
  3. FLOMAX [Concomitant]
     Dosage: .4MG PER DAY
  4. IMODIUM [Concomitant]
  5. DECADRON [Concomitant]
     Indication: HYPERCALCAEMIA
  6. ALLEGRA [Concomitant]
     Dosage: 180MG PER DAY
  7. ACIDOPHILUS [Concomitant]
  8. TEMAZEPAM [Concomitant]
     Dosage: 30MG AT NIGHT

REACTIONS (15)
  - GASTROINTESTINAL SOUNDS ABNORMAL [None]
  - PRODUCTIVE COUGH [None]
  - CELLULITIS [None]
  - ASTHENIA [None]
  - ABDOMINAL DISTENSION [None]
  - INTESTINAL OBSTRUCTION [None]
  - DIARRHOEA [None]
  - INTESTINAL DILATATION [None]
  - SEPTIC SHOCK [None]
  - MALAISE [None]
  - VOLVULUS [None]
  - FLATULENCE [None]
  - ABDOMINAL PAIN UPPER [None]
  - SMALL INTESTINAL OBSTRUCTION [None]
  - ALANINE AMINOTRANSFERASE INCREASED [None]
